FAERS Safety Report 24656729 (Version 2)
Quarter: 2024Q4

REPORT INFORMATION
  Report Type: Report from Study
  Country: DE (occurrence: DE)
  Receive Date: 20241125
  Receipt Date: 20241204
  Transmission Date: 20250115
  Serious: No
  Sender: ROCHE
  Company Number: DE-ML42393-1062-005-1_0

PATIENT
  Age: 58 Year
  Sex: Female

DRUGS (13)
  1. OCRELIZUMAB [Suspect]
     Active Substance: OCRELIZUMAB
     Indication: Relapsing multiple sclerosis
     Dosage: DOSE FREQUENCY: ONCE
     Route: 042
     Dates: start: 20240416
  2. Cannabis inhalation [Concomitant]
     Dosage: DOSE: UNK?DOSE FREQUENCY: PRN (AS NEEDED)
     Route: 055
     Dates: start: 202301
  3. GABAPENTIN [Concomitant]
     Active Substance: GABAPENTIN
     Dosage: DOSE: 300?DOSE FREQUENCY: BID (TWICE A DAY)
     Route: 048
     Dates: start: 2017
  4. METHYLPREDNISOLONE [Concomitant]
     Active Substance: METHYLPREDNISOLONE
     Indication: Prophylaxis
     Dosage: DOSE FREQUENCY: ONCE
     Route: 042
     Dates: start: 20240416, end: 20240416
  5. METHYLPREDNISOLONE [Concomitant]
     Active Substance: METHYLPREDNISOLONE
     Dosage: DOSE FREQUENCY: ONCE
     Route: 042
     Dates: start: 20240502, end: 20240502
  6. METHYLPREDNISOLONE [Concomitant]
     Active Substance: METHYLPREDNISOLONE
     Dosage: DOSE FREQUENCY: ONCE
     Route: 042
     Dates: start: 20241115, end: 20241115
  7. ACETAMINOPHEN [Concomitant]
     Active Substance: ACETAMINOPHEN
     Indication: Prophylaxis
     Dosage: DOSE FREQUENCY: ONCE
     Route: 042
     Dates: start: 20240416, end: 20240416
  8. ACETAMINOPHEN [Concomitant]
     Active Substance: ACETAMINOPHEN
     Dosage: DOSE FREQUENCY: ONCE
     Route: 042
     Dates: start: 20240502, end: 20240502
  9. ACETAMINOPHEN [Concomitant]
     Active Substance: ACETAMINOPHEN
     Dosage: DOSE FREQUENCY: ONCE
     Route: 042
     Dates: start: 20241115, end: 20241115
  10. DIMETHINDENE [Concomitant]
     Active Substance: DIMETHINDENE
     Indication: Prophylaxis
     Dosage: DOSE FREQUENCY: ONCE
     Route: 042
     Dates: start: 20241115, end: 20241115
  11. DIMETHINDENE [Concomitant]
     Active Substance: DIMETHINDENE
     Dosage: DOSE FREQUENCY: ONCE
     Route: 042
     Dates: start: 20240502, end: 20240502
  12. DIMETHINDENE [Concomitant]
     Active Substance: DIMETHINDENE
     Dosage: DOSE FREQUENCY: ONCE
     Route: 042
     Dates: start: 20240416, end: 20240416
  13. SODIUM PROPIONATE [Concomitant]
     Active Substance: SODIUM PROPIONATE
     Indication: Prophylaxis
     Route: 048
     Dates: start: 2020

REACTIONS (1)
  - Herpes zoster [Recovered/Resolved]

NARRATIVE: CASE EVENT DATE: 20240531
